FAERS Safety Report 6613501-2 (Version None)
Quarter: 2010Q1

REPORT INFORMATION
  Report Type: 
  Country: None (occurrence: None)
  Receive Date: 20100304
  Receipt Date: 20100225
  Transmission Date: 20100710
  Serious: Yes (Other)
  Sender: FDA-Public Use
  Company Number: FR-JNJFOC-20100200824

PATIENT
  Sex: Male
  Weight: 76 kg

DRUGS (9)
  1. DURAGESIC-100 [Suspect]
     Indication: DRUG USE FOR UNKNOWN INDICATION
     Route: 062
     Dates: start: 20010101, end: 20100223
  2. ACTIQ [Suspect]
     Indication: FIBROMYALGIA
     Dates: start: 20020101
  3. REQUIP [Concomitant]
     Indication: PAIN
     Route: 048
     Dates: start: 20090801, end: 20100223
  4. NOCTAMIDE [Concomitant]
     Indication: INSOMNIA
     Route: 048
     Dates: start: 20010101, end: 20100223
  5. SERTRALINE HCL [Concomitant]
     Indication: DEPRESSION
     Route: 048
     Dates: start: 20060101, end: 20100223
  6. LAROXYL [Concomitant]
     Indication: DEPRESSION
     Route: 048
     Dates: start: 20010101, end: 20100223
  7. RIVOTRIL [Concomitant]
     Indication: DEPRESSION
     Route: 048
     Dates: start: 20020101, end: 20100223
  8. SPIFEN [Concomitant]
  9. PARIET [Concomitant]

REACTIONS (2)
  - GINGIVAL DISORDER [None]
  - TOOTH LOSS [None]
